FAERS Safety Report 8367511-8 (Version None)
Quarter: 2012Q2

REPORT INFORMATION
  Report Type: 
  Country: None (occurrence: None)
  Receive Date: 20120517
  Receipt Date: 20120409
  Transmission Date: 20120825
  Serious: No
  Sender: FDA-Public Use
  Company Number: US-GLAXOSMITHKLINE-A0973642A

PATIENT
  Age: 63 Year
  Sex: Female

DRUGS (2)
  1. VOTRIENT [Suspect]
     Indication: HEPATIC NEOPLASM MALIGNANT
     Dosage: 600MG PER DAY
     Route: 048
  2. ANTIHYPERTENSIVE [Concomitant]

REACTIONS (4)
  - HYPERTENSION [None]
  - DIARRHOEA [None]
  - DECREASED APPETITE [None]
  - FATIGUE [None]
